FAERS Safety Report 16015792 (Version 1)
Quarter: 2019Q1

REPORT INFORMATION
  Report Type: Spontaneous
  Country: GB (occurrence: GB)
  Receive Date: 20190228
  Receipt Date: 20190228
  Transmission Date: 20190418
  Serious: Yes (Other)
  Sender: FDA-Public Use
  Company Number: GB-GLAXOSMITHKLINE-GB2019034746

PATIENT
  Age: 30 Year
  Sex: Female
  Weight: 80 kg

DRUGS (2)
  1. LAMOTRIGINE. [Suspect]
     Active Substance: LAMOTRIGINE
     Indication: EPILEPSY
     Dosage: 100 MG, QD
     Route: 065
  2. DOXYCYCLINE. [Interacting]
     Active Substance: DOXYCYCLINE
     Indication: UPPER RESPIRATORY TRACT INFECTION
     Dosage: 100 MG, QD
     Route: 048
     Dates: start: 20190202, end: 20190206

REACTIONS (2)
  - Epilepsy [Recovered/Resolved]
  - Drug interaction [Unknown]

NARRATIVE: CASE EVENT DATE: 20190206
